FAERS Safety Report 21583189 (Version 3)
Quarter: 2022Q4

REPORT INFORMATION
  Report Type: Spontaneous
  Country: US (occurrence: US)
  Receive Date: 20221111
  Receipt Date: 20221221
  Transmission Date: 20230112
  Serious: No
  Sender: FDA-Public Use
  Company Number: US-SA-SAC20221110000795

PATIENT
  Age: 60 Year
  Sex: Female
  Weight: 93.8 kg

DRUGS (2)
  1. DUPIXENT [Suspect]
     Active Substance: DUPILUMAB
     Indication: Dermatitis atopic
     Dosage: 300 MG, QOW
     Route: 058
     Dates: start: 202104, end: 20221011
  2. ADBRY [Suspect]
     Active Substance: TRALOKINUMAB-LDRM
     Dosage: UNK

REACTIONS (8)
  - Fatigue [Unknown]
  - Eczema [Unknown]
  - Gastritis [Unknown]
  - Vision blurred [Unknown]
  - Rash [Unknown]
  - Eye pruritus [Unknown]
  - Conjunctivitis allergic [Not Recovered/Not Resolved]
  - Drug ineffective [Unknown]
